FAERS Safety Report 23494792 (Version 3)
Quarter: 2024Q1

REPORT INFORMATION
  Report Type: Spontaneous
  Country: US (occurrence: US)
  Receive Date: 20240207
  Receipt Date: 20240221
  Transmission Date: 20240409
  Serious: No
  Sender: FDA-Public Use
  Company Number: US-AMGEN-USASP2024025701

PATIENT
  Age: 41 Year
  Sex: Male

DRUGS (2)
  1. OTEZLA [Suspect]
     Active Substance: APREMILAST
     Indication: Psoriasis
     Dosage: 30 MILLIGRAM, BID
     Route: 048
     Dates: start: 20231216
  2. CLOBETASOL PROPIONATE [Concomitant]
     Active Substance: CLOBETASOL PROPIONATE
     Dosage: UNK
     Route: 065

REACTIONS (6)
  - Headache [Unknown]
  - Nausea [Unknown]
  - Infection [Unknown]
  - Product dose omission issue [Unknown]
  - Vomiting [Unknown]
  - Diarrhoea [Unknown]
